FAERS Safety Report 16541325 (Version 1)
Quarter: 2019Q3

REPORT INFORMATION
  Report Type: Spontaneous
  Country: GB (occurrence: GB)
  Receive Date: 20190708
  Receipt Date: 20190708
  Transmission Date: 20191004
  Serious: Yes (Other)
  Sender: FDA-Public Use
  Company Number: GB-TEVA-2019-GB-1074162

PATIENT
  Age: 57 Year
  Sex: Male
  Weight: 110 kg

DRUGS (16)
  1. DEPO-MEDRONE [Concomitant]
     Active Substance: METHYLPREDNISOLONE
     Dosage: USE AS DIRECTED.
     Dates: start: 20190410, end: 20190411
  2. OMACOR [Concomitant]
     Active Substance: OMEGA-3-ACID ETHYL ESTERS
     Dates: start: 20180807, end: 20190207
  3. AMLODIPINE [Concomitant]
     Active Substance: AMLODIPINE BESYLATE
     Dates: start: 20180807
  4. SERTRALINE [Concomitant]
     Active Substance: SERTRALINE HYDROCHLORIDE
     Dates: start: 20180807
  5. PERINDOPRIL TERT-BUTYLAMINE [Concomitant]
     Active Substance: PERINDOPRIL ERBUMINE
     Dates: start: 20180807
  6. FERROUS GLUCONATE [Concomitant]
     Active Substance: FERROUS GLUCONATE
     Dates: start: 20180807
  7. ATORVASTATIN [Concomitant]
     Active Substance: ATORVASTATIN
     Dates: start: 20180807
  8. ATENOLOL. [Concomitant]
     Active Substance: ATENOLOL
     Dates: start: 20180807
  9. HYDROCORTISONE. [Concomitant]
     Active Substance: HYDROCORTISONE
     Dosage: APPLY.
     Dates: start: 20190225, end: 20190325
  10. ZOMORPH [Concomitant]
     Active Substance: MORPHINE SULFATE
     Dates: start: 20181213
  11. METFORMIN [Concomitant]
     Active Substance: METFORMIN HYDROCHLORIDE
     Dosage: TAKE TWO AT BREAKFAST ONE AT LUNCH
     Dates: start: 20180807
  12. DAPAGLIFLOZIN. [Concomitant]
     Active Substance: DAPAGLIFLOZIN
     Dates: start: 20190225
  13. AMOXICILLIN. [Suspect]
     Active Substance: AMOXICILLIN
     Dates: start: 20190410
  14. LIDOCAINE. [Concomitant]
     Active Substance: LIDOCAINE
     Dosage: USE AS DIRECTED.
     Dates: start: 20190410, end: 20190411
  15. LANSOPRAZOLE. [Concomitant]
     Active Substance: LANSOPRAZOLE
     Dates: start: 20180807
  16. SILDENAFIL. [Concomitant]
     Active Substance: SILDENAFIL
     Dosage: 1 AN HOUR BEFORE SEXUAL ACTIVITY.
     Dates: start: 20180807

REACTIONS (2)
  - Urticaria [Recovering/Resolving]
  - Swelling face [Unknown]

NARRATIVE: CASE EVENT DATE: 201904
